FAERS Safety Report 6531174-4 (Version None)
Quarter: 2010Q1

REPORT INFORMATION
  Report Type: 
  Country: None (occurrence: None)
  Receive Date: 20100108
  Receipt Date: 20091229
  Transmission Date: 20100710
  Serious: Yes (Death)
  Sender: FDA-Public Use
  Company Number: DE-ROCHE-675632

PATIENT
  Sex: Female
  Weight: 63.5 kg

DRUGS (4)
  1. CAPECITABINE [Suspect]
     Indication: BREAST CANCER
     Route: 048
     Dates: start: 20091203
  2. TAXOTERE [Suspect]
     Indication: BREAST CANCER
     Dosage: FIRST CYCLE
     Route: 042
     Dates: start: 20091203
  3. FORTECORTIN [Suspect]
     Indication: BREAST CANCER
     Route: 048
     Dates: start: 20091203
  4. PANTOPRAZOLE [Suspect]
     Indication: BREAST CANCER
     Route: 048
     Dates: start: 20091203

REACTIONS (4)
  - CEREBROVASCULAR ACCIDENT [None]
  - HEPATIC FAILURE [None]
  - MALIGNANT NEOPLASM PROGRESSION [None]
  - SEPSIS [None]
